FAERS Safety Report 8389143-8 (Version None)
Quarter: 2012Q2

REPORT INFORMATION
  Report Type: 
  Country: None (occurrence: None)
  Receive Date: 20120528
  Receipt Date: 20120523
  Transmission Date: 20120825
  Serious: Yes (Other)
  Sender: FDA-Public Use
  Company Number: PHEH2010US03488

PATIENT
  Sex: Female

DRUGS (18)
  1. CLARITHROMYCIN [Concomitant]
  2. LORTAB [Concomitant]
  3. AUGMENTIN '125' [Concomitant]
  4. FERROUS SULFATE TAB [Concomitant]
  5. AREDIA [Suspect]
  6. OMEPRAZOLE [Concomitant]
  7. NEXIUM [Concomitant]
  8. OMEGA [Concomitant]
  9. IMODIUM [Concomitant]
  10. LISINOPRIL [Concomitant]
  11. MORPHINE [Concomitant]
  12. RANITIDINE [Concomitant]
  13. AMOXICILLIN [Concomitant]
  14. PAMIDRONATE DISODIUM [Suspect]
  15. PANTOPRAZOLE [Concomitant]
  16. TYLENOL [Concomitant]
  17. ZOCOR [Concomitant]
     Dates: start: 20100413
  18. PEPCID [Concomitant]

REACTIONS (46)
  - IMPAIRED HEALING [None]
  - HIATUS HERNIA [None]
  - AORTIC ARTERIOSCLEROSIS [None]
  - PERIHEPATIC ABSCESS [None]
  - ARTHRALGIA [None]
  - CONSTIPATION [None]
  - DISABILITY [None]
  - SWELLING [None]
  - ANHEDONIA [None]
  - CATARACT [None]
  - DYSPHAGIA [None]
  - PHARYNGEAL INFLAMMATION [None]
  - OSTEITIS [None]
  - PEPTIC ULCER [None]
  - ARTHRITIS [None]
  - ANXIETY [None]
  - INJURY [None]
  - DYSPEPSIA [None]
  - GASTROOESOPHAGEAL REFLUX DISEASE [None]
  - RENAL FAILURE CHRONIC [None]
  - PAIN [None]
  - GASTRITIS [None]
  - UPPER GASTROINTESTINAL HAEMORRHAGE [None]
  - OSTEOPOROSIS [None]
  - ANAEMIA [None]
  - CHOLECYSTITIS ACUTE [None]
  - OSTEOPENIA [None]
  - ABSCESS JAW [None]
  - HAEMATEMESIS [None]
  - HELICOBACTER INFECTION [None]
  - NASAL CONGESTION [None]
  - CELLULITIS [None]
  - GENERAL PHYSICAL HEALTH DETERIORATION [None]
  - DIVERTICULUM [None]
  - MULTIPLE MYELOMA [None]
  - HYPERCHOLESTEROLAEMIA [None]
  - OSTEOARTHRITIS [None]
  - URINARY TRACT INFECTION [None]
  - BACK PAIN [None]
  - PARAPROTEINAEMIA [None]
  - OSTEONECROSIS OF JAW [None]
  - ESSENTIAL HYPERTENSION [None]
  - OESOPHAGEAL STENOSIS [None]
  - DYSPNOEA [None]
  - ABDOMINAL PAIN UPPER [None]
  - MUSCULAR WEAKNESS [None]
